FAERS Safety Report 4702060-7 (Version None)
Quarter: 2005Q2

REPORT INFORMATION
  Report Type: 
  Country: None (occurrence: None)
  Receive Date: 20050627
  Receipt Date: 20050621
  Transmission Date: 20051028
  Serious: Yes (Life-Threatening, Hospitalization)
  Sender: FDA-Public Use
  Company Number: HQWYE618322JUN05

PATIENT
  Age: 50 Year
  Sex: Male
  Weight: 135.29 kg

DRUGS (1)
  1. CYCLOSPORINE [Suspect]
     Indication: PROPHYLAXIS AGAINST TRANSPLANT REJECTION
     Dosage: 50 MG 2X PER 1 DAY, ORAL
     Route: 048
     Dates: start: 20020405, end: 20050613

REACTIONS (9)
  - ABDOMINAL HERNIA [None]
  - CELLULITIS [None]
  - CHILLS [None]
  - HEPATIC NEOPLASM MALIGNANT [None]
  - NECROTISING FASCIITIS [None]
  - PEAU D'ORANGE [None]
  - PYREXIA [None]
  - SUBCUTANEOUS EMPHYSEMA [None]
  - WHITE BLOOD CELL COUNT INCREASED [None]
